FAERS Safety Report 7272176 (Version 9)
Quarter: 2014Q2

REPORT INFORMATION
  Report Type: Report from Study
  Country: CA (occurrence: CA)
  Receive Date: 20100205
  Receipt Date: 20140519
  Transmission Date: 20141212
  Serious: Yes (Hospitalization, Other)
  Sender: FDA-Public Use
  Company Number: PHHY2009CA53601

PATIENT
  Age: 52 Year
  Sex: Female

DRUGS (1)
  1. SANDOSTATIN LAR [Suspect]
     Indication: PITUITARY TUMOUR
     Dosage: 20 MG, EVERY 4 WEEKS
     Route: 030
     Dates: start: 20091028, end: 20101227

REACTIONS (14)
  - Malaise [Not Recovered/Not Resolved]
  - Cholelithiasis [Recovered/Resolved]
  - Pain [Recovered/Resolved]
  - Pyrexia [Unknown]
  - Abdominal pain [Unknown]
  - Pancreatitis [Unknown]
  - Disease progression [Unknown]
  - Fatigue [Recovered/Resolved]
  - Anxiety [Unknown]
  - Ocular discomfort [Unknown]
  - Hypoaesthesia eye [Unknown]
  - Hypoaesthesia [Unknown]
  - Headache [Unknown]
  - Drug ineffective [Unknown]
